FAERS Safety Report 15455103 (Version 1)
Quarter: 2018Q4

REPORT INFORMATION
  Report Type: Spontaneous
  Country: DE (occurrence: DE)
  Receive Date: 20181002
  Receipt Date: 20181002
  Transmission Date: 20190204
  Serious: Yes (Hospitalization)
  Sender: FDA-Public Use
  Company Number: DE-TEVA-2018-DE-958199

PATIENT
  Age: 78 Year
  Sex: Female

DRUGS (1)
  1. INDOMET (INDOMETACIN) [Suspect]
     Active Substance: INDOMETHACIN
     Dosage: MORE THAN ONE YEAR

REACTIONS (2)
  - Gastric ulcer haemorrhage [Recovering/Resolving]
  - Gastric ulcer [Recovering/Resolving]

NARRATIVE: CASE EVENT DATE: 201807
